FAERS Safety Report 4379069-9 (Version None)
Quarter: 2004Q2

REPORT INFORMATION
  Report Type: 
  Country: None (occurrence: None)
  Receive Date: 20040610
  Receipt Date: 20040527
  Transmission Date: 20050107
  Serious: Yes (Hospitalization)
  Sender: FDA-Public Use
  Company Number: 04P-163-0253894-02

PATIENT
  Age: 60 Year
  Sex: Male

DRUGS (19)
  1. RITONAVIR [Suspect]
     Indication: HIV INFECTION
     Dosage: 400 MG, PER ORAL
     Route: 048
     Dates: start: 20030827, end: 20040401
  2. RITONAVIR [Suspect]
     Indication: HIV INFECTION
     Dosage: 400 MG, PER ORAL
     Route: 048
     Dates: start: 20040420
  3. TIPRANAVIR [Concomitant]
  4. FUZEON [Concomitant]
  5. EMTRICITABINE [Concomitant]
  6. VIREAD [Concomitant]
  7. ATENOLOL [Concomitant]
  8. ZETIA [Concomitant]
  9. FENOFIBRATE [Concomitant]
  10. ATORVASTATIN CALCIUM [Concomitant]
  11. ROSIGLITAZONE MALEATE [Concomitant]
  12. CLARITHROMYCIN [Concomitant]
  13. DAPSONE [Concomitant]
  14. SERTRALINE HYDROCHLORIDE [Concomitant]
  15. CENTRUM [Concomitant]
  16. GABAPENTIN [Concomitant]
  17. OMEPRAZOLE [Concomitant]
  18. FEXOFENADINE HYDROCHLORIDE [Concomitant]
  19. FINASTERIDE [Concomitant]

REACTIONS (12)
  - ACIDOSIS [None]
  - BIOPSY KIDNEY ABNORMAL [None]
  - BLOOD ELECTROLYTES ABNORMAL [None]
  - CARDIAC FAILURE CONGESTIVE [None]
  - COUGH [None]
  - DYSPNOEA PAROXYSMAL NOCTURNAL [None]
  - FABRY'S DISEASE [None]
  - FLUID OVERLOAD [None]
  - HAEMODIALYSIS [None]
  - KIDNEY ENLARGEMENT [None]
  - RENAL FAILURE [None]
  - RENAL FAILURE ACUTE [None]
